FAERS Safety Report 9101886 (Version 1)
Quarter: 2013Q1

REPORT INFORMATION
  Report Type: Spontaneous
  Country: US (occurrence: US)
  Receive Date: 20130218
  Receipt Date: 20130218
  Transmission Date: 20140127
  Serious: No
  Sender: FDA-Public Use
  Company Number: US-COVIDIEN/TYCO HEALTHCARE/MALLINCKRODT-T201204509

PATIENT
  Sex: 0

DRUGS (2)
  1. TECHNESCAN HDP [Suspect]
     Indication: PRODUCT USED FOR UNKNOWN INDICATION
  2. ULTRA-TECHNEKOW DTE GENERATOR [Concomitant]
     Dosage: UNK

REACTIONS (1)
  - Drug ineffective [Unknown]
